FAERS Safety Report 5424731-X (Version None)
Quarter: 2007Q3

REPORT INFORMATION
  Report Type: 
  Country: None (occurrence: None)
  Receive Date: 20070822
  Receipt Date: 20070822
  Transmission Date: 20080115
  Serious: Yes (Other)
  Sender: FDA-Public Use
  Company Number: None

PATIENT
  Age: 81 Year
  Sex: Male

DRUGS (1)
  1. AMITIZA [Suspect]
     Indication: CONSTIPATION
     Dosage: 24MG TWICE DAILY PO
     Route: 048
     Dates: start: 20070504, end: 20070529

REACTIONS (2)
  - HEPATIC CIRRHOSIS [None]
  - HEPATITIS ACUTE [None]
